FAERS Safety Report 10409609 (Version 1)
Quarter: 2014Q3

REPORT INFORMATION
  Report Type: Report from Study
  Country: ZA (occurrence: ZA)
  Receive Date: 20140826
  Receipt Date: 20140826
  Transmission Date: 20150326
  Serious: Yes (Other)
  Sender: FDA-Public Use
  Company Number: ZA-BAYER-2014-063476

PATIENT
  Sex: Female

DRUGS (1)
  1. BETAFERON [Suspect]
     Active Substance: INTERFERON BETA-1B

REACTIONS (11)
  - Fatigue [None]
  - Rash [Not Recovered/Not Resolved]
  - Injection site bruising [None]
  - Multiple sclerosis [None]
  - Hepatic enzyme increased [None]
  - Local swelling [None]
  - Injection site erythema [None]
  - Injection site pruritus [None]
  - Cutaneous lupus erythematosus [None]
  - Headache [Recovered/Resolved]
  - Influenza like illness [None]

NARRATIVE: CASE EVENT DATE: 201008
